FAERS Safety Report 5042727-7 (Version None)
Quarter: 2006Q3

REPORT INFORMATION
  Report Type: 
  Country: None (occurrence: None)
  Receive Date: 20060705
  Receipt Date: 20060601
  Transmission Date: 20061208
  Serious: Yes (Life-Threatening, Hospitalization)
  Sender: FDA-Public Use
  Company Number: DE-AVENTIS-200611626DE

PATIENT
  Age: 74 Year
  Sex: Female
  Weight: 75 kg

DRUGS (7)
  1. NOVALGIN [Suspect]
     Indication: PAIN
     Route: 048
     Dates: start: 20060522, end: 20060529
  2. NOVALGIN [Suspect]
     Route: 048
     Dates: start: 20060301, end: 20060401
  3. CLEXANE [Suspect]
     Indication: DEEP VEIN THROMBOSIS
     Dosage: DOSE: NOT REPORTED
     Route: 058
  4. DELIX PLUS [Concomitant]
     Indication: HYPERTENSION
     Dosage: DOSE: COMBINATION 5MG/25MG
     Route: 048
  5. VIGANTOLETTEN [Concomitant]
     Indication: OSTEOPOROSIS
     Route: 048
     Dates: start: 20060522
  6. CALCIUM GLUCONATE [Concomitant]
     Dosage: DOSE: NOT REPORTED
     Route: 048
     Dates: start: 20060522
  7. OXYGESIC [Concomitant]
     Indication: ANALGESIC THERAPY
     Route: 048
     Dates: start: 20060522

REACTIONS (8)
  - AGRANULOCYTOSIS [None]
  - APHTHOUS STOMATITIS [None]
  - CELLULITIS [None]
  - HAEMORRHAGE [None]
  - LEUKOPENIA [None]
  - NEUTROPENIA [None]
  - PYREXIA [None]
  - THROMBOCYTOPENIA [None]
